FAERS Safety Report 5097484-5 (Version None)
Quarter: 2006Q3

REPORT INFORMATION
  Report Type: 
  Country: None (occurrence: None)
  Receive Date: 20060901
  Receipt Date: 20060815
  Transmission Date: 20061208
  Serious: Yes (Hospitalization, Other)
  Sender: FDA-Public Use
  Company Number: US_0511123440

PATIENT
  Sex: Male
  Weight: 122.7 kg

DRUGS (1)
  1. ZYPREXA [Suspect]
     Indication: SCHIZOPHRENIA
     Dosage: 20 MG, ORAL
     Route: 048
     Dates: start: 19980101, end: 20030101

REACTIONS (10)
  - BLOOD CHOLESTEROL ABNORMAL [None]
  - BLOOD TRIGLYCERIDES INCREASED [None]
  - CARDIAC DISORDER [None]
  - DIABETES MELLITUS NON-INSULIN-DEPENDENT [None]
  - HYPERINSULINISM [None]
  - HYPERTENSION [None]
  - METABOLIC DISORDER [None]
  - MYOCARDIAL INFARCTION [None]
  - OBESITY [None]
  - WEIGHT INCREASED [None]
